FAERS Safety Report 6862239-5 (Version None)
Quarter: 2010Q3

REPORT INFORMATION
  Report Type: 
  Country: None (occurrence: None)
  Receive Date: 20100721
  Receipt Date: 20100716
  Transmission Date: 20110219
  Serious: Yes (Death, Other)
  Sender: FDA-Public Use
  Company Number: IN-GENZYME-CERZ-1001405

PATIENT

DRUGS (1)
  1. CEREZYME [Suspect]
     Indication: GAUCHER'S DISEASE
     Dosage: 800 U, UNK
     Route: 042
     Dates: start: 20100618, end: 20100713

REACTIONS (7)
  - ACUTE RESPIRATORY DISTRESS SYNDROME [None]
  - BRUXISM [None]
  - COMA SCALE ABNORMAL [None]
  - FALL [None]
  - HAEMORRHAGE INTRACRANIAL [None]
  - PNEUMONIA [None]
  - RETINAL HAEMORRHAGE [None]
